FAERS Safety Report 11828664 (Version 1)
Quarter: 2015Q4

REPORT INFORMATION
  Report Type: Spontaneous
  Country: US (occurrence: US)
  Receive Date: 20151211
  Receipt Date: 20151211
  Transmission Date: 20160305
  Serious: No
  Sender: FDA-Public Use
  Company Number: US-JUBILANT CADISTA PHARMACEUTICALS-2015JUB00204

PATIENT
  Age: 69 Year
  Sex: Female

DRUGS (4)
  1. METHYLPREDNISOLONE. [Suspect]
     Active Substance: METHYLPREDNISOLONE
     Dosage: 1 TABLETS, ONCE
     Dates: start: 20150611, end: 20150611
  2. TRAMADOL. [Suspect]
     Active Substance: TRAMADOL
     Dosage: 25 MG, 2X/DAY
     Dates: start: 201506
  3. TRAMADOL. [Suspect]
     Active Substance: TRAMADOL
     Dosage: 50 MG, UP TO 3X/DAY
     Dates: start: 201504, end: 20150610
  4. METHYLPREDNISOLONE. [Suspect]
     Active Substance: METHYLPREDNISOLONE
     Dosage: 2 TABLETS, ONCE
     Dates: start: 20150611, end: 20150611

REACTIONS (8)
  - Headache [Recovered/Resolved]
  - Crying [Recovered/Resolved]
  - Hyperhidrosis [Recovered/Resolved]
  - Chills [Recovered/Resolved]
  - Palpitations [Recovered/Resolved]
  - Nausea [Recovered/Resolved]
  - Depression [Recovered/Resolved]
  - Morbid thoughts [Recovered/Resolved]

NARRATIVE: CASE EVENT DATE: 20150611
